FAERS Safety Report 13326856 (Version 1)
Quarter: 2017Q1

REPORT INFORMATION
  Report Type: Spontaneous
  Country: US (occurrence: US)
  Receive Date: 20170312
  Receipt Date: 20170312
  Transmission Date: 20170428
  Serious: No
  Sender: FDA-Public Use
  Company Number: US-ABBVIE-16P-163-1748871-00

PATIENT
  Sex: Female

DRUGS (1)
  1. LUPRON [Suspect]
     Active Substance: LEUPROLIDE ACETATE
     Indication: ENDOMETRIOSIS
     Route: 050

REACTIONS (6)
  - Pain [Unknown]
  - Colitis [Unknown]
  - Gastrointestinal disorder [Unknown]
  - Abdominal distension [Unknown]
  - Weight increased [Unknown]
  - Feeling abnormal [Unknown]
